FAERS Safety Report 9697635 (Version 1)
Quarter: 2013Q4

REPORT INFORMATION
  Report Type: Spontaneous
  Country: US (occurrence: US)
  Receive Date: 20131120
  Receipt Date: 20131120
  Transmission Date: 20140711
  Serious: Yes (Other)
  Sender: FDA-Public Use
  Company Number: US-PFIZER INC-2013327285

PATIENT
  Age: 72 Year
  Sex: Female

DRUGS (1)
  1. SUTENT [Suspect]
     Dosage: 37.5 MG CYCLIC (DAILY, 4 WEEKS ON, 2 WEEK OFF)
     Route: 048
     Dates: start: 20121026

REACTIONS (1)
  - Blood pressure increased [Unknown]
